FAERS Safety Report 15255489 (Version 1)
Quarter: 2018Q3

REPORT INFORMATION
  Report Type: Spontaneous
  Country: US (occurrence: US)
  Receive Date: 20180717
  Receipt Date: 20180717
  Transmission Date: 20181010
  Serious: Yes (Other)
  Sender: FDA-Public Use
  Company Number: None

PATIENT
  Age: 64 Year
  Sex: Male
  Weight: 85.05 kg

DRUGS (7)
  1. VITAMIN B COMPLEX [Concomitant]
     Active Substance: CYANOCOBALAMIN\DEXPANTHENOL\NIACINAMIDE\PYRIDOXINE HYDROCHLORIDE\RIBOFLAVIN 5^-PHOSPHATE SODIUM\THIAMINE HYDROCHLORIDE\VITAMIN B COMPLEX
  2. GABAPENTIN. [Suspect]
     Active Substance: GABAPENTIN
     Indication: ARTHRALGIA
     Dosage: ?          QUANTITY:1 CAPSULE(S);OTHER FREQUENCY:1AM/1PM/3NTTME;?
     Route: 048
  3. LORATADINE. [Concomitant]
     Active Substance: LORATADINE
  4. CENTRUM SILVER MULTIVITAMIN [Concomitant]
  5. FLUTICASONE. [Concomitant]
     Active Substance: FLUTICASONE
  6. MAGNESIUM [Concomitant]
     Active Substance: MAGNESIUM
  7. OMEPRAZOLE. [Concomitant]
     Active Substance: OMEPRAZOLE

REACTIONS (2)
  - Drug effect decreased [None]
  - Somnolence [None]

NARRATIVE: CASE EVENT DATE: 20180710
